FAERS Safety Report 8804912 (Version 1)
Quarter: 2012Q4

REPORT INFORMATION
  Report Type: Spontaneous
  Country: US (occurrence: None)
  Receive Date: 20120918
  Receipt Date: 20120918
  Transmission Date: 20130627
  Serious: Yes (Hospitalization, Disabling, Other)
  Sender: FDA-Public Use
  Company Number: None

PATIENT
  Age: 63 Year
  Sex: Female
  Weight: 70.76 kg

DRUGS (4)
  1. LEFLUNOMIDE [Suspect]
     Indication: EROSIVE OSTEOARTHRITIS
     Route: 048
     Dates: start: 20120105, end: 20120404
  2. LEFLUNOMIDE [Suspect]
     Indication: RHEUMATOID ARTHRITIS
     Route: 048
     Dates: start: 20120105, end: 20120404
  3. LEFLUNOMIDE [Suspect]
     Indication: EROSIVE OSTEOARTHRITIS
     Dosage: 10 MG, THEN 15 MG ONCE A DAY PO
  4. LEFLUNOMIDE [Suspect]
     Indication: RHEUMATOID ARTHRITIS
     Dosage: 10 MG, THEN 15 MG ONCE A DAY PO

REACTIONS (4)
  - Cerebrovascular accident [None]
  - Migraine [None]
  - Thrombosis [None]
  - Nervous system disorder [None]
